FAERS Safety Report 4674316-8 (Version None)
Quarter: 2005Q2

REPORT INFORMATION
  Report Type: 
  Country: None (occurrence: None)
  Receive Date: 20050524
  Receipt Date: 20050510
  Transmission Date: 20051028
  Serious: Yes (Hospitalization, Other)
  Sender: FDA-Public Use
  Company Number: USA050495113

PATIENT
  Age: 75 Year
  Sex: Female

DRUGS (6)
  1. FORTEO [Suspect]
     Dosage: 20 UG DAY
     Dates: start: 20050223, end: 20050310
  2. MUCINEX (GUAIFENESIN L.A.) [Concomitant]
  3. FOSAMAX [Concomitant]
  4. CALCIUM GLUCONATE [Concomitant]
  5. TRIAM (TRIAMCINOLONE ACETONIDE) [Concomitant]
  6. ASPIRIN [Concomitant]

REACTIONS (7)
  - AMNESIA [None]
  - FALL [None]
  - FEELING ABNORMAL [None]
  - LUNG INFECTION [None]
  - MYOCARDIAL INFARCTION [None]
  - NASOPHARYNGITIS [None]
  - POST PROCEDURAL PAIN [None]
